FAERS Safety Report 10792600 (Version 1)
Quarter: 2015Q1

REPORT INFORMATION
  Report Type: Spontaneous
  Country: US (occurrence: None)
  Receive Date: 20150211
  Receipt Date: 20150211
  Transmission Date: 20150721
  Serious: Yes (Death)
  Sender: FDA-Public Use
  Company Number: 201501165

PATIENT
  Age: 74 Year
  Sex: Male

DRUGS (1)
  1. TESTOPEL [Suspect]
     Active Substance: TESTOSTERONE
     Indication: BLOOD TESTOSTERONE DECREASED
     Route: 058

REACTIONS (4)
  - Economic problem [None]
  - Pain [None]
  - Cerebrovascular accident [None]
  - Emotional disorder [None]

NARRATIVE: CASE EVENT DATE: 20131116
